FAERS Safety Report 7994614-X (Version None)
Quarter: 2011Q4

REPORT INFORMATION
  Report Type: 
  Country: None (occurrence: None)
  Receive Date: 20111220
  Receipt Date: 20111213
  Transmission Date: 20120403
  Serious: Yes (Disabling)
  Sender: FDA-Public Use
  Company Number: GB-GENZYME-FABR-1002292

PATIENT
  Sex: Male
  Weight: 49.3 kg

DRUGS (1)
  1. FABRAZYME [Suspect]
     Indication: FABRY'S DISEASE
     Dosage: 0.7 MG/KG, Q2W
     Route: 042
     Dates: start: 20110923

REACTIONS (3)
  - GENERAL PHYSICAL HEALTH DETERIORATION [None]
  - PAIN [None]
  - PARAESTHESIA [None]
